FAERS Safety Report 9017166 (Version 4)
Quarter: 2013Q3

REPORT INFORMATION
  Report Type: Spontaneous
  Country: AR (occurrence: AR)
  Receive Date: 20130117
  Receipt Date: 20130705
  Transmission Date: 20140515
  Serious: Yes (Hospitalization, Other)
  Sender: FDA-Public Use
  Company Number: AR-AMGEN-ARGSP2012069162

PATIENT
  Age: 49 Year
  Sex: Female

DRUGS (1)
  1. ENBREL [Suspect]
     Indication: RHEUMATOID ARTHRITIS
     Dosage: 50 MG, WEEKLY
     Route: 058
     Dates: start: 20110102, end: 2011

REACTIONS (5)
  - Bunion [Recovered/Resolved]
  - Osteoarthritis [Recovered/Resolved]
  - Patient-device incompatibility [Recovered/Resolved]
  - Red blood cell count decreased [Recovered/Resolved]
  - Infection [Recovered/Resolved]
